FAERS Safety Report 6857032-3 (Version None)
Quarter: 2010Q3

REPORT INFORMATION
  Report Type: 
  Country: None (occurrence: None)
  Receive Date: 20100719
  Receipt Date: 20100712
  Transmission Date: 20110219
  Serious: Yes (Other)
  Sender: FDA-Public Use
  Company Number: A0870753A

PATIENT
  Age: 77 Year
  Sex: Female

DRUGS (5)
  1. RELAFEN [Suspect]
     Indication: PAIN
  2. LISINOPRIL [Suspect]
     Indication: HYPERTENSION
     Dates: start: 20070801, end: 20081201
  3. LISINOPRIL [Suspect]
     Dates: end: 20100501
  4. PLAQUENIL [Suspect]
  5. IMURAN [Concomitant]

REACTIONS (8)
  - DEHYDRATION [None]
  - DRUG INTERACTION [None]
  - DRY EYE [None]
  - DRY MOUTH [None]
  - DYSPHAGIA [None]
  - PHOTOSENSITIVITY REACTION [None]
  - VISUAL ACUITY REDUCED [None]
  - WEIGHT DECREASED [None]
